FAERS Safety Report 6744487-8 (Version None)
Quarter: 2010Q2

REPORT INFORMATION
  Report Type: 
  Country: None (occurrence: None)
  Receive Date: 20100527
  Receipt Date: 20100517
  Transmission Date: 20101027
  Serious: Yes (Other)
  Sender: FDA-Public Use
  Company Number: SE-PFIZER INC-2010061890

PATIENT
  Age: 63 Year
  Sex: Female

DRUGS (7)
  1. AROMASIN [Suspect]
     Indication: BREAST CANCER
     Dosage: UNK
     Dates: start: 20091101
  2. TROMBYL [Concomitant]
     Dosage: UNK
  3. TRADOLAN [Concomitant]
     Dosage: UNK
  4. PRONAXEN [Concomitant]
     Dosage: UNK
  5. POTASSIUM CHLORIDE [Concomitant]
     Dosage: UNK
  6. MORFIN [Concomitant]
     Dosage: UNK
  7. PROPAVAN [Concomitant]
     Dosage: UNK

REACTIONS (4)
  - GOUTY ARTHRITIS [None]
  - HEADACHE [None]
  - INSOMNIA [None]
  - NAUSEA [None]
